FAERS Safety Report 17894622 (Version 1)
Quarter: 2020Q2

REPORT INFORMATION
  Report Type: Spontaneous
  Country: US (occurrence: US)
  Receive Date: 20200612
  Receipt Date: 20200612
  Transmission Date: 20200714
  Serious: No
  Sender: FDA-Public Use
  Company Number: None

PATIENT
  Sex: Female

DRUGS (2)
  1. VERZENIO [Suspect]
     Active Substance: ABEMACICLIB
     Indication: BREAST CANCER STAGE IV
     Route: 048
     Dates: start: 20200401
  2. LETROZOLE. [Concomitant]
     Active Substance: LETROZOLE

REACTIONS (13)
  - Dysphonia [None]
  - Haemoglobin decreased [None]
  - Insomnia [None]
  - Pain in extremity [None]
  - Pain in jaw [None]
  - Bone loss [None]
  - Pulmonary toxicity [None]
  - Cough [None]
  - Dyspnoea [None]
  - Bone marrow failure [None]
  - Haematocrit decreased [None]
  - Gingival pain [None]
  - Contrast media reaction [None]
